FAERS Safety Report 24188156 (Version 1)
Quarter: 2024Q3

REPORT INFORMATION
  Report Type: Spontaneous
  Country: US (occurrence: US)
  Receive Date: 20240808
  Receipt Date: 20240808
  Transmission Date: 20241016
  Serious: Yes (Other)
  Sender: ANAZAOHEALTH CORPORATION
  Company Number: US-AnazaoHealth Corporation-2160161

PATIENT
  Age: 70 Year
  Sex: Female
  Weight: 70.455 kg

DRUGS (2)
  1. ESTRADIOL [Suspect]
     Active Substance: ESTRADIOL
     Indication: Menopause
     Route: 058
     Dates: start: 20181129
  2. TESTOSTERONE [Concomitant]
     Active Substance: TESTOSTERONE
     Route: 058
     Dates: start: 20181129

REACTIONS (1)
  - Uterine mass [Unknown]
